FAERS Safety Report 16557653 (Version 1)
Quarter: 2019Q3

REPORT INFORMATION
  Report Type: Spontaneous
  Country: GB (occurrence: GB)
  Receive Date: 20190711
  Receipt Date: 20190711
  Transmission Date: 20191004
  Serious: Yes (Other)
  Sender: FDA-Public Use
  Company Number: GB-SUN PHARMACEUTICAL INDUSTRIES LTD-2019RR-212141

PATIENT
  Sex: Male

DRUGS (1)
  1. SERTRALINE 50 MG FILM-COATED TABLETS [Suspect]
     Active Substance: SERTRALINE HYDROCHLORIDE
     Indication: PRODUCT USED FOR UNKNOWN INDICATION
     Dosage: 100 MILLIGRAM, DAILY
     Route: 065
     Dates: start: 201905

REACTIONS (3)
  - Tremor [Unknown]
  - Drug ineffective [Unknown]
  - Product substitution issue [Unknown]
